FAERS Safety Report 5703042-9 (Version None)
Quarter: 2008Q2

REPORT INFORMATION
  Report Type: 
  Country: None (occurrence: None)
  Receive Date: 20080411
  Receipt Date: 20080331
  Transmission Date: 20081010
  Serious: Yes (Hospitalization, Other)
  Sender: FDA-Public Use
  Company Number: US-ELI_LILLY_AND_COMPANY-US200803006944

PATIENT
  Sex: Female

DRUGS (3)
  1. EVISTA [Suspect]
     Dates: end: 20050401
  2. THYROID THERAPY [Concomitant]
     Indication: THYROID DISORDER
  3. CALCIUM WITH VITAMIN D [Concomitant]

REACTIONS (5)
  - BONE DENSITY DECREASED [None]
  - CALCIUM DEFICIENCY [None]
  - NODULE [None]
  - OESOPHAGEAL DISORDER [None]
  - THYROID CANCER [None]
